FAERS Safety Report 6341364-1 (Version None)
Quarter: 2009Q3

REPORT INFORMATION
  Report Type: 
  Country: None (occurrence: None)
  Receive Date: 20090902
  Receipt Date: 20090902
  Transmission Date: 20100115
  Serious: Yes (Hospitalization)
  Sender: FDA-Public Use
  Company Number: None

PATIENT
  Age: 61 Year
  Sex: Male
  Weight: 68.0396 kg

DRUGS (2)
  1. 99M TC SESTAMIBI COVIDIEN [Suspect]
     Indication: CHEST PAIN
     Dosage: 14.3 MCI ONCE IV
     Route: 042
     Dates: start: 20060901, end: 20090901
  2. 99M TC SESTAMIBI COVIDIEN [Suspect]
     Indication: HYPERTENSION
     Dosage: 14.3 MCI ONCE IV
     Route: 042
     Dates: start: 20060901, end: 20090901

REACTIONS (5)
  - ASTHENIA [None]
  - BLOOD PRESSURE DECREASED [None]
  - DIZZINESS [None]
  - HYPERHIDROSIS [None]
  - UNRESPONSIVE TO STIMULI [None]
